FAERS Safety Report 13525336 (Version 1)
Quarter: 2017Q2

REPORT INFORMATION
  Report Type: Spontaneous
  Country: US (occurrence: US)
  Receive Date: 20170508
  Receipt Date: 20170508
  Transmission Date: 20170830
  Serious: No
  Sender: FDA-Public Use
  Company Number: US-ROCHE-1123318

PATIENT
  Sex: Male

DRUGS (6)
  1. XELODA [Suspect]
     Active Substance: CAPECITABINE
     Indication: COLON CANCER
     Route: 065
  2. 5-FU [Concomitant]
     Active Substance: FLUOROURACIL
  3. LEUCOVORIN. [Concomitant]
     Active Substance: LEUCOVORIN
  4. AVASTIN [Suspect]
     Active Substance: BEVACIZUMAB
     Indication: COLON CANCER
     Route: 065
     Dates: end: 200505
  5. AVASTIN [Suspect]
     Active Substance: BEVACIZUMAB
     Dosage: RESTARTED ON AN UNKNOWN DATE
     Route: 065
  6. OXALIPLATIN. [Concomitant]
     Active Substance: OXALIPLATIN
     Route: 065
     Dates: end: 20060425

REACTIONS (1)
  - Hepatic lesion [Unknown]
